FAERS Safety Report 8362896-0 (Version None)
Quarter: 2012Q1

REPORT INFORMATION
  Report Type: 
  Country: None (occurrence: None)
  Receive Date: 20120323
  Receipt Date: 20110420
  Transmission Date: 20120608
  Serious: Yes (Other)
  Sender: FDA-Public Use
  Company Number: 163-21880-11042772

PATIENT
  Age: 74 Year
  Sex: Male
  Weight: 70.3075 kg

DRUGS (18)
  1. DEXAMETHASONE [Concomitant]
  2. ONDANSETRON [Concomitant]
  3. MILK OF MAGNESIA TAB [Concomitant]
  4. MST 600 (MORPHINE SULFATE) [Concomitant]
  5. REGLAN [Concomitant]
  6. ASCORBIC ACID [Concomitant]
  7. LOMOTIL [Concomitant]
  8. LOVENOX [Concomitant]
  9. AMIODARONE HCL [Concomitant]
  10. ATARAX [Concomitant]
  11. METFORMIN HCL [Concomitant]
  12. DIGOXIN [Concomitant]
  13. METOPROLOL TARTRATE [Concomitant]
  14. REVLIMID [Suspect]
     Indication: MULTIPLE MYELOMA
     Dosage: 25 MG, X 21 DAYS W/7 DAYS OFF, PO
     Route: 048
     Dates: start: 20110308
  15. COLACE (DOCUSATE SODIUM) [Concomitant]
  16. MEGACE [Concomitant]
  17. VELCADE [Concomitant]
  18. ZOMETA [Concomitant]

REACTIONS (1)
  - HYPOTENSION [None]
